FAERS Safety Report 10153166 (Version 7)
Quarter: 2014Q4

REPORT INFORMATION
  Report Type: Spontaneous
  Country: US (occurrence: US)
  Receive Date: 20140505
  Receipt Date: 20141201
  Transmission Date: 20150528
  Serious: Yes (Hospitalization, Other)
  Sender: FDA-Public Use
  Company Number: US-009507513-1404USA014017

PATIENT
  Sex: Female
  Weight: 57.15 kg

DRUGS (8)
  1. FOSAMAX [Suspect]
     Active Substance: ALENDRONATE SODIUM
     Dosage: 70 MG, UNK
     Route: 048
     Dates: end: 20120629
  2. FOSAMAX [Suspect]
     Active Substance: ALENDRONATE SODIUM
     Indication: OSTEOPENIA
     Dosage: 35 MG, UNK
     Route: 048
     Dates: start: 20100907, end: 20120629
  3. CALCIUM (UNSPECIFIED) [Concomitant]
     Active Substance: CALCIUM
     Indication: OSTEOPOROSIS
     Dosage: 1000-1500 MG, QD
     Dates: start: 1997
  4. ALENDRONATE SODIUM. [Suspect]
     Active Substance: ALENDRONATE SODIUM
     Indication: OSTEOPOROSIS
     Dosage: 70 MG, UNK
     Route: 048
     Dates: start: 20090221, end: 20120427
  5. FOSAMAX [Suspect]
     Active Substance: ALENDRONATE SODIUM
     Indication: OSTEOPOROSIS
     Dosage: 10 MG, QD
     Route: 048
     Dates: start: 19990222, end: 20120629
  6. ESTROGEN NOS [Concomitant]
     Active Substance: ESTROGENS
     Dosage: UNK
     Dates: start: 1997, end: 20021112
  7. FOSAMAX [Suspect]
     Active Substance: ALENDRONATE SODIUM
     Dosage: 70 MG, QW
     Route: 048
     Dates: start: 20120709
  8. ALENDRONATE SODIUM. [Suspect]
     Active Substance: ALENDRONATE SODIUM
     Indication: OSTEOPENIA

REACTIONS (27)
  - Femur fracture [Recovered/Resolved]
  - Low turnover osteopathy [Unknown]
  - Cardiac murmur [Unknown]
  - Dyslipidaemia [Unknown]
  - Gastrooesophageal reflux disease [Unknown]
  - Mitral valve prolapse [Unknown]
  - Strabismus [Unknown]
  - Type 2 diabetes mellitus [Unknown]
  - Constipation [Recovered/Resolved]
  - Anaemia postoperative [Unknown]
  - Bursitis [Unknown]
  - Intramedullary rod insertion [Unknown]
  - Cholecystectomy [Unknown]
  - Biliary tract disorder [Unknown]
  - Tooth extraction [Unknown]
  - Polyp [Unknown]
  - Haematuria [Unknown]
  - Haematuria [Unknown]
  - Intramedullary rod insertion [Recovered/Resolved]
  - Vitamin D deficiency [Unknown]
  - Electrolyte imbalance [Unknown]
  - Haematuria [Unknown]
  - Gastritis [Unknown]
  - Femur fracture [Unknown]
  - Foot fracture [Unknown]
  - Insomnia [Unknown]
  - Eye operation [Unknown]

NARRATIVE: CASE EVENT DATE: 1999
